FAERS Safety Report 10016566 (Version 1)
Quarter: 2014Q1

REPORT INFORMATION
  Report Type: Spontaneous
  Country: US (occurrence: US)
  Receive Date: 20140317
  Receipt Date: 20140317
  Transmission Date: 20141002
  Serious: No
  Sender: FDA-Public Use
  Company Number: US-B.I. PHARMACEUTICALS,INC./RIDGEFIELD-2014-BI-11282BP

PATIENT
  Age: 70 Year
  Sex: Female
  Weight: 57 kg

DRUGS (3)
  1. COMBIVENT [Suspect]
     Indication: ASTHMA
     Dosage: DOSE PER APPLICATION: 20 MCG / 100 MCG; DAILY DOSE: 80 MCG/400MCG
     Route: 055
     Dates: start: 20140311
  2. CARDIZEM [Concomitant]
     Indication: HYPERTENSION
     Route: 065
  3. DIAZIDE [Concomitant]
     Indication: HYPERTENSION
     Route: 065

REACTIONS (3)
  - Viral infection [Not Recovered/Not Resolved]
  - Accidental exposure to product [Unknown]
  - Off label use [Unknown]
